FAERS Safety Report 5095516-1 (Version None)
Quarter: 2006Q3

REPORT INFORMATION
  Report Type: 
  Country: None (occurrence: None)
  Receive Date: 20060831
  Receipt Date: 20060831
  Transmission Date: 20061208
  Serious: Yes (Hospitalization)
  Sender: FDA-Public Use
  Company Number: None

PATIENT
  Age: 28 Year
  Sex: Female
  Weight: 54.0688 kg

DRUGS (10)
  1. TRINESSA [Suspect]
     Indication: CONTRACEPTION
     Dosage: ONE PO DAILY
     Route: 048
  2. TYLENOL W/ CODEINE NO. 3 [Concomitant]
  3. MIDRIN [Concomitant]
  4. . [Concomitant]
  5. . [Concomitant]
  6. . [Concomitant]
  7. . [Concomitant]
  8. . [Concomitant]
  9. . [Concomitant]
  10. . [Concomitant]

REACTIONS (1)
  - CEREBROVASCULAR ACCIDENT [None]
